FAERS Safety Report 10185929 (Version 4)
Quarter: 2014Q2

REPORT INFORMATION
  Report Type: Report from Study
  Country: US (occurrence: US)
  Receive Date: 20140521
  Receipt Date: 20140626
  Transmission Date: 20141212
  Serious: Yes (Death, Hospitalization, Other)
  Sender: FDA-Public Use
  Company Number: US-CELGENEUS-163-21880-14040105

PATIENT
  Age: 81 Year
  Sex: Female
  Weight: 40.09 kg

DRUGS (2)
  1. REVLIMID [Suspect]
     Indication: PLASMA CELL MYELOMA
     Dosage: 25 MILLIGRAM
     Route: 048
     Dates: start: 20140226
  2. VELCADE [Suspect]
     Indication: PLASMA CELL MYELOMA
     Dosage: 1.68 MILLIGRAM
     Route: 058
     Dates: start: 20140519, end: 20140519

REACTIONS (8)
  - Death [Fatal]
  - Sick sinus syndrome [Not Recovered/Not Resolved]
  - Pathological fracture [Unknown]
  - Pain [Unknown]
  - Asthenia [Unknown]
  - Fall [Unknown]
  - Cardiac failure congestive [Unknown]
  - Cardiac failure congestive [Recovered/Resolved]
